FAERS Safety Report 7375902-7 (Version None)
Quarter: 2011Q1

REPORT INFORMATION
  Report Type: 
  Country: None (occurrence: None)
  Receive Date: 20110325
  Receipt Date: 20110317
  Transmission Date: 20110831
  Serious: Yes (Hospitalization)
  Sender: FDA-Public Use
  Company Number: B0706524A

PATIENT
  Sex: Female

DRUGS (7)
  1. SURGAM [Suspect]
     Indication: MOBILITY DECREASED
     Dosage: 1UNIT TWICE PER DAY
     Route: 048
     Dates: start: 20110107, end: 20110108
  2. TOPALGIC (FRANCE) [Concomitant]
     Route: 065
  3. ARIXTRA [Suspect]
     Indication: THROMBOPHLEBITIS SUPERFICIAL
     Dosage: 7.5MG PER DAY
     Route: 058
     Dates: start: 20110106, end: 20110109
  4. ZYLORIC [Concomitant]
     Route: 065
  5. MOPRAL [Concomitant]
     Route: 065
  6. ACETAMINOPHEN [Concomitant]
     Route: 065
  7. ALDACTONE [Concomitant]
     Route: 065

REACTIONS (2)
  - EPISTAXIS [None]
  - OVERDOSE [None]
